FAERS Safety Report 24384848 (Version 1)
Quarter: 2024Q4

REPORT INFORMATION
  Report Type: Spontaneous
  Country: CN (occurrence: CN)
  Receive Date: 20241001
  Receipt Date: 20241001
  Transmission Date: 20250115
  Serious: Yes (Life-Threatening)
  Sender: ROCHE
  Company Number: CN-CHEPLA-2024012268

PATIENT
  Age: 64 Year
  Sex: Male

DRUGS (3)
  1. CAPECITABINE [Suspect]
     Active Substance: CAPECITABINE
     Indication: Rectal cancer stage IV
     Dosage: APPROVAL NO. GYZZ H20073024 / BID?06-SEP-2024: MOST RECENT DOSE
     Route: 048
     Dates: start: 20240824, end: 20240906
  2. BEVACIZUMAB [Suspect]
     Active Substance: BEVACIZUMAB
     Indication: Rectal cancer stage IV
     Dosage: APPROVAL NO. GYZZ SJ20170035 / QD / INTRAVENOUS INFUSION?MOST RECENT DOSE ON 24-AUG-2024
     Route: 042
     Dates: start: 20240824, end: 20240824
  3. OXALIPLATIN [Suspect]
     Active Substance: OXALIPLATIN
     Indication: Rectal cancer stage IV
     Dosage: APPROVAL NO. GYZZ H20213312 / INTRAVENOUS INFUSION / QD?MOST RECENT DOSE ON 24-AUG-2024
     Route: 042
     Dates: start: 20240824, end: 20240824

REACTIONS (2)
  - Myelosuppression [Recovering/Resolving]
  - White blood cell count decreased [Unknown]

NARRATIVE: CASE EVENT DATE: 20240827
